FAERS Safety Report 4436113-8 (Version None)
Quarter: 2004Q3

REPORT INFORMATION
  Report Type: 
  Country: None (occurrence: None)
  Receive Date: 20040726
  Receipt Date: 20040512
  Transmission Date: 20050211
  Serious: No
  Sender: FDA-Public Use
  Company Number: USA030434060

PATIENT
  Age: 59 Year
  Sex: Female

DRUGS (14)
  1. FORTEO [Suspect]
     Indication: OSTEOPOROSIS
     Dosage: 20 UG/DAY
     Dates: start: 20030409
  2. KEPPRA [Concomitant]
  3. LAMICTAL [Concomitant]
  4. TAMBOCOR [Concomitant]
  5. SYNTHROID [Concomitant]
  6. DURAGESIC [Concomitant]
  7. ACIPHEX [Concomitant]
  8. PHENERGAN [Concomitant]
  9. VICODIN [Concomitant]
  10. FORADIL [Concomitant]
  11. PAXIL [Concomitant]
  12. AEROBID [Concomitant]
  13. ALBUTEROL [Concomitant]
  14. SROOL SOFTNER(DOCUSATE SODIUM) [Concomitant]

REACTIONS (6)
  - ASTHMA [None]
  - BONE PAIN [None]
  - CHOLELITHIASIS [None]
  - INJECTION SITE PAIN [None]
  - NAUSEA [None]
  - VOMITING [None]
